FAERS Safety Report 5908482-0 (Version None)
Quarter: 2008Q4

REPORT INFORMATION
  Report Type: 
  Country: None (occurrence: None)
  Receive Date: 20081006
  Receipt Date: 20080812
  Transmission Date: 20090506
  Serious: No
  Sender: FDA-Public Use
  Company Number: US-BAYER-200831095NA

PATIENT
  Sex: Female
  Weight: 107 kg

DRUGS (1)
  1. YASMIN [Suspect]
     Indication: CONTRACEPTION
     Route: 048
     Dates: start: 20080627

REACTIONS (2)
  - MENSTRUAL DISORDER [None]
  - METRORRHAGIA [None]
